FAERS Safety Report 15496061 (Version 1)
Quarter: 2018Q4

REPORT INFORMATION
  Report Type: Spontaneous
  Country: US (occurrence: US)
  Receive Date: 20181012
  Receipt Date: 20181012
  Transmission Date: 20190205
  Serious: Yes (Other)
  Sender: FDA-Public Use
  Company Number: PHHY2018US118650

PATIENT
  Sex: Male
  Weight: 2.16 kg

DRUGS (10)
  1. OXACILLIN [Suspect]
     Active Substance: OXACILLIN SODIUM
     Dosage: 1,000 MG/L ,UNK (MATERNAL DOSE)
     Route: 064
  2. OXACILLIN [Suspect]
     Active Substance: OXACILLIN SODIUM
     Indication: FOETAL EXPOSURE DURING PREGNANCY
     Dosage: 1,000 MG/L ,UNK (MATERNAL DOSE)
     Route: 064
  3. INDIGO CARMINE [Suspect]
     Active Substance: INDIGOTINDISULFONATE SODIUM
     Indication: FOETAL EXPOSURE DURING PREGNANCY
     Dosage: 5 ML (MATERNAL DOSE)
     Route: 064
  4. BETAMETHASONE. [Suspect]
     Active Substance: BETAMETHASONE
     Indication: FOETAL EXPOSURE DURING PREGNANCY
     Dosage: UNK (MATERNAL DOSE)
     Route: 064
  5. PENICILLIN [Suspect]
     Active Substance: PENICILLIN
     Indication: FOETAL EXPOSURE DURING PREGNANCY
     Dosage: UNK (MATERNAL DOSE)
     Route: 064
  6. NACL [Suspect]
     Active Substance: SODIUM CHLORIDE
     Dosage: 800 ML OF 0.9% CONCENTRATION (MATENAL DOSE)
     Route: 064
  7. AMPICILLIN [Suspect]
     Active Substance: AMPICILLIN
     Indication: FOETAL EXPOSURE DURING PREGNANCY
     Dosage: UNK (MATERNAL DOSE)
     Route: 064
  8. AZITHROMYCIN ANHYDROUS. [Suspect]
     Active Substance: AZITHROMYCIN ANHYDROUS
     Indication: FOETAL EXPOSURE DURING PREGNANCY
     Dosage: UNK(MATERNAL DOSE)
     Route: 064
  9. ACYCLOVIR. [Suspect]
     Active Substance: ACYCLOVIR
     Indication: FOETAL EXPOSURE DURING PREGNANCY
     Dosage: UNK (MATERNAL DOSE)
     Route: 064
  10. NACL [Suspect]
     Active Substance: SODIUM CHLORIDE
     Indication: FOETAL EXPOSURE DURING PREGNANCY
     Dosage: 400 ML OF 0.9 % CONCENTRATION (MATERNAL DOSE)
     Route: 064

REACTIONS (3)
  - Foetal exposure during pregnancy [Unknown]
  - Low birth weight baby [Unknown]
  - Premature baby [Unknown]
